FAERS Safety Report 4950058-6 (Version None)
Quarter: 2006Q1

REPORT INFORMATION
  Report Type: 
  Country: None (occurrence: None)
  Receive Date: 20060320
  Receipt Date: 20060320
  Transmission Date: 20060701
  Serious: Yes (Life-Threatening, Hospitalization)
  Sender: FDA-Public Use
  Company Number: None

PATIENT
  Age: 63 Year
  Sex: Female

DRUGS (3)
  1. XELODA [Suspect]
     Indication: PANCREATIC CARCINOMA METASTATIC
     Dosage: 1500MG/M2 /DAY  DAILY  ORAL
     Route: 048
     Dates: start: 20060225, end: 20060310
  2. GEMZAR [Suspect]
     Dosage: 750MG/M2
     Route: 041
     Dates: start: 20060228, end: 20060307
  3. TAXOTERE [Suspect]
     Dosage: 30MG/M2
     Dates: start: 20060228, end: 20060307

REACTIONS (1)
  - APPENDICECTOMY [None]
